FAERS Safety Report 9170955 (Version 1)
Quarter: 2013Q1

REPORT INFORMATION
  Report Type: Spontaneous
  Country: US (occurrence: US)
  Receive Date: 20130319
  Receipt Date: 20130319
  Transmission Date: 20140127
  Serious: Yes (Disabling, Other)
  Sender: FDA-Public Use
  Company Number: US-BAYER-2013-031291

PATIENT
  Age: 49 Year
  Sex: Female
  Weight: 65.76 kg

DRUGS (14)
  1. BETASERON [Suspect]
     Indication: PRIMARY PROGRESSIVE MULTIPLE SCLEROSIS
     Dosage: 0.25 MG, QOD
     Route: 058
  2. PROVIGIL [Concomitant]
     Dosage: 100 MG, UNK
  3. VITAMIN B COMPLEX [B3,B6,B2,B1 HCL] [Concomitant]
  4. VITAMIN B12 [CYANOCOBALAMIN] [Concomitant]
     Dosage: 1000 ?G, UNK
     Route: 058
  5. LEVOTHYROXIN [Concomitant]
     Dosage: 137 ?G, UNK
  6. ALLOPURINOL [Concomitant]
     Dosage: 100 MG, UNK
  7. MESALAMINE [Concomitant]
     Dosage: 1.2 G, UNK
  8. ASCORBACID W/CYANOCOBAL/FE FUMARATE/FOLIC AC [Concomitant]
  9. MULTIVITAMIN [Concomitant]
  10. CALTRATE [Concomitant]
  11. ASPIRIN [ACETYLSALICYLIC ACID] [Concomitant]
     Dosage: 81 MG, UNK
  12. SIMVASTATIN [Concomitant]
     Dosage: 20 MG, UNK
  13. MEGESTROL [Concomitant]
     Dosage: 40 MG, UNK
  14. NAMENDA [Concomitant]
     Dosage: 10 MG, UNK

REACTIONS (5)
  - Physical disability [Unknown]
  - Amnesia [Unknown]
  - Deafness unilateral [Unknown]
  - Back pain [Unknown]
  - Off label use [Unknown]
